FAERS Safety Report 8938344 (Version 1)
Quarter: 2012Q4

REPORT INFORMATION
  Report Type: Spontaneous
  Country: US (occurrence: None)
  Receive Date: 20121128
  Receipt Date: 20121128
  Transmission Date: 20130627
  Serious: Yes (Other)
  Sender: FDA-Public Use
  Company Number: None

PATIENT
  Sex: Female
  Weight: 79.38 kg

DRUGS (2)
  1. FLUOXETINE [Suspect]
     Indication: ANXIETY
     Route: 048
     Dates: start: 20020801, end: 20021001
  2. FLUOXETINE [Suspect]
     Indication: ANXIETY
     Dates: start: 20021001, end: 20021230

REACTIONS (1)
  - Drug ineffective [None]
